FAERS Safety Report 8135562-4 (Version None)
Quarter: 2012Q1

REPORT INFORMATION
  Report Type: 
  Country: None (occurrence: None)
  Receive Date: 20120103
  Receipt Date: 20111111
  Transmission Date: 20120608
  Serious: No
  Sender: FDA-Public Use
  Company Number: AE-2011-003371

PATIENT
  Age: 41 Year
  Sex: Male
  Weight: 92.9874 kg

DRUGS (8)
  1. PEGASYS [Concomitant]
  2. RIBAVIRIN [Concomitant]
  3. MULTIVITAMIN (MULTIVITAMIN ^LAPPE^) [Concomitant]
  4. INCIVEK [Suspect]
     Dosage: 2250 MG (750 MG, 1 IN 8 HR, ORAL
     Route: 048
     Dates: start: 20111014
  5. CHANTIX [Concomitant]
  6. DOXYCYCLINE [Concomitant]
  7. LISINOPRIL [Concomitant]
  8. ACETAMINOPHEN [Concomitant]

REACTIONS (4)
  - DIZZINESS [None]
  - FATIGUE [None]
  - DYSPNOEA [None]
  - ANAEMIA [None]
